FAERS Safety Report 7046246-8 (Version None)
Quarter: 2010Q4

REPORT INFORMATION
  Report Type: 
  Country: None (occurrence: None)
  Receive Date: 20101014
  Receipt Date: 20101007
  Transmission Date: 20110411
  Serious: Yes (Hospitalization)
  Sender: FDA-Public Use
  Company Number: A0884053A

PATIENT
  Sex: Female
  Weight: 74 kg

DRUGS (5)
  1. AVANDIA [Suspect]
     Dosage: 4MG PER DAY
     Route: 065
     Dates: start: 20070101
  2. PRANDIN [Concomitant]
     Dosage: 1TAB PER DAY
     Dates: start: 20070101
  3. PURAN T4 [Concomitant]
     Dosage: 1TAB PER DAY
     Dates: start: 20070101
  4. DIOVAN [Concomitant]
     Dosage: 80MG PER DAY
     Dates: start: 20060101
  5. INSULIN [Concomitant]
     Route: 065

REACTIONS (7)
  - CARDIOGENIC SHOCK [None]
  - CATHETER PLACEMENT [None]
  - CHEST PAIN [None]
  - CORONARY ARTERY OCCLUSION [None]
  - HYPERTENSION [None]
  - MYOCARDIAL INFARCTION [None]
  - STENT PLACEMENT [None]
